FAERS Safety Report 7000081-5 (Version None)
Quarter: 2010Q3

REPORT INFORMATION
  Report Type: 
  Country: None (occurrence: None)
  Receive Date: 20100920
  Receipt Date: 20100913
  Transmission Date: 20110219
  Serious: Yes (Life-Threatening, Hospitalization, Other)
  Sender: FDA-Public Use
  Company Number: RU-ELI_LILLY_AND_COMPANY-RU200912005693

PATIENT
  Sex: Female
  Weight: 72 kg

DRUGS (7)
  1. GEMCITABINE HCL [Suspect]
     Indication: BREAST CANCER METASTATIC
     Dosage: 1250 MG/M2, DAYS 1+8 EVERY 21 DAYS
     Route: 042
     Dates: start: 20091204, end: 20091211
  2. PACLITAXEL [Suspect]
     Indication: BREAST CANCER METASTATIC
     Dosage: 175 MG/M2, DAY 1 EVERY 21 DAYS
     Route: 042
     Dates: start: 20091204, end: 20091204
  3. CEFAZOLIN [Concomitant]
     Dates: start: 20091214
  4. ASPIRIN [Concomitant]
     Dates: start: 20091214
  5. DETRALEX [Concomitant]
     Dates: start: 20091214
  6. GRANULOCYTE COLONY STIMULATING FACTOR [Concomitant]
     Dates: start: 20091215, end: 20091215
  7. HEPATHROMBIN [Concomitant]
     Dates: start: 20091214

REACTIONS (2)
  - NEUTROPENIA [None]
  - PULMONARY EMBOLISM [None]
